FAERS Safety Report 14853369 (Version 5)
Quarter: 2018Q4

REPORT INFORMATION
  Report Type: Report from Study
  Country: BE (occurrence: BE)
  Receive Date: 20180507
  Receipt Date: 20181018
  Transmission Date: 20190204
  Serious: Yes (Other)
  Sender: FDA-Public Use
  Company Number: BE-PFIZER INC-2018177977

PATIENT
  Age: 45 Year
  Sex: Male
  Weight: 84 kg

DRUGS (7)
  1. DULCOLAXO [Concomitant]
     Dosage: UNK
     Dates: start: 201606, end: 20171104
  2. BEVACIZUMAB. [Suspect]
     Active Substance: BEVACIZUMAB
     Indication: COLORECTAL CANCER METASTATIC
     Dosage: UNK UNK, CYCLIC(EVERY 2 WEEKS)
     Route: 042
     Dates: start: 20170821
  3. IRINOTECAN HCL [Suspect]
     Active Substance: IRINOTECAN HYDROCHLORIDE
     Indication: COLORECTAL CANCER METASTATIC
     Dosage: UNK UNK, CYCLIC (EVERY 2 WEEKS)
     Route: 042
     Dates: start: 20170821
  4. FLUOROURACIL. [Suspect]
     Active Substance: FLUOROURACIL
     Indication: COLORECTAL CANCER METASTATIC
     Dosage: UNK UNK, CYCLIC, EVERY 2 WEEKS
     Route: 042
     Dates: start: 20170821
  5. CO-DIOVANE [Concomitant]
     Dosage: UNK
     Dates: start: 20120615
  6. LEUCOVORIN /00566701/ [Suspect]
     Active Substance: LEUCOVORIN
     Indication: COLORECTAL CANCER METASTATIC
     Dosage: UNK UNK, CYCLIC (EVERY 2 WEEKS)
     Route: 042
     Dates: start: 20170821
  7. CLEXANE [Concomitant]
     Active Substance: ENOXAPARIN SODIUM
     Indication: PROPHYLAXIS
     Dosage: UNK
     Dates: start: 20180622, end: 20180629

REACTIONS (14)
  - Alanine aminotransferase increased [Recovered/Resolved]
  - Anorectal discomfort [Recovered/Resolved]
  - Stomatitis [Recovered/Resolved]
  - Diarrhoea [Recovered/Resolved]
  - Proctalgia [Recovered/Resolved]
  - Neutropenia [Recovered/Resolved]
  - Aspartate aminotransferase increased [Not Recovered/Not Resolved]
  - Low anterior resection syndrome [Recovered/Resolved]
  - Nausea [Not Recovered/Not Resolved]
  - Conjunctivitis [Recovered/Resolved]
  - Headache [Recovered/Resolved]
  - Fatigue [Not Recovered/Not Resolved]
  - Aphthous ulcer [Recovered/Resolved]
  - Epistaxis [Recovered/Resolved]

NARRATIVE: CASE EVENT DATE: 20170824
